FAERS Safety Report 8613264-5 (Version None)
Quarter: 2012Q3

REPORT INFORMATION
  Report Type: 
  Country: None (occurrence: None)
  Receive Date: 20120822
  Receipt Date: 20120803
  Transmission Date: 20120928
  Serious: Yes (Other)
  Sender: FDA-Public Use
  Company Number: US-009507513-1208USA002073

PATIENT

DRUGS (2)
  1. ACTONEL [Suspect]
     Dosage: UNK
     Dates: start: 20050301, end: 20060801
  2. FOSAMAX [Suspect]
     Dosage: UNK
     Route: 048
     Dates: start: 20060801, end: 20110801

REACTIONS (2)
  - FEMUR FRACTURE [None]
  - LOW TURNOVER OSTEOPATHY [None]
